FAERS Safety Report 6780729-0 (Version None)
Quarter: 2010Q2

REPORT INFORMATION
  Report Type: 
  Country: None (occurrence: None)
  Receive Date: 20100621
  Receipt Date: 20100608
  Transmission Date: 20101027
  Serious: Yes (Other)
  Sender: FDA-Public Use
  Company Number: GR-JNJFOC-20100604331

PATIENT
  Age: 62 Year
  Sex: Male

DRUGS (1)
  1. STELARA [Suspect]
     Indication: PSORIASIS
     Dosage: PATIENT RECEIVED 4 DOSES
     Route: 058

REACTIONS (3)
  - BACK PAIN [None]
  - HAEMATURIA [None]
  - PLATELET COUNT DECREASED [None]
